FAERS Safety Report 21711994 (Version 3)
Quarter: 2023Q1

REPORT INFORMATION
  Report Type: Report from Study
  Country: EG (occurrence: EG)
  Receive Date: 20221212
  Receipt Date: 20230219
  Transmission Date: 20230417
  Serious: Yes (Other)
  Sender: FDA-Public Use
  Company Number: EG-002147023-NVSC2022EG285339

PATIENT
  Age: 37 Year
  Sex: Female

DRUGS (12)
  1. KISQALI [Suspect]
     Active Substance: RIBOCICLIB
     Indication: Breast cancer metastatic
     Dosage: 3 DOSAGE FORM, QD (FOR 3 WEEKS THEN 1 WEEK OFF)
     Route: 065
     Dates: start: 202112
  2. KISQALI [Suspect]
     Active Substance: RIBOCICLIB
     Indication: Metastases to neck
     Dosage: 3 DOSAGE FORM, QD (3 TABLETS ONCE DAILY FOR 21 DAYS AND WEEK FREE)
     Route: 048
     Dates: start: 202201, end: 20221230
  3. KISQALI [Suspect]
     Active Substance: RIBOCICLIB
     Indication: Metastases to liver
  4. CONTROLOC [Concomitant]
     Active Substance: PANTOPRAZOLE SODIUM
     Indication: Gastrointestinal disorder prophylaxis
     Dosage: 1 DOSAGE FORM, QD (1- 1 TABLET BEFORE MEALS)
     Route: 065
     Dates: start: 20211201
  5. ZOLADEX [Concomitant]
     Active Substance: GOSERELIN ACETATE
     Indication: Breast cancer metastatic
     Dosage: 1 DOSAGE FORM, Q4W (1 INJECTION EVERY 28 DAYS)
     Route: 065
     Dates: start: 202112
  6. ZOLADEX [Concomitant]
     Active Substance: GOSERELIN ACETATE
     Indication: Anovulatory cycle
     Dosage: 1 DOSAGE FORM, Q4W (ONE INJECTION EVERY 28 DAYS)
     Route: 065
     Dates: start: 202201
  7. FEMARA [Concomitant]
     Active Substance: LETROZOLE
     Indication: Breast cancer metastatic
     Dosage: 1 DOSAGE FORM, QD
     Route: 065
     Dates: start: 202208
  8. FEMARA [Concomitant]
     Active Substance: LETROZOLE
     Dosage: 1 DOSAGE FORM, QD (ONE TABLET DAILY)
     Route: 048
     Dates: start: 202209
  9. OSTEOCARE [Concomitant]
     Active Substance: CALCIUM\CHOLECALCIFEROL\MAGNESIUM\ZINC
     Indication: Osteoporosis prophylaxis
     Dosage: 2 DOSAGE FORM, QD
     Route: 065
     Dates: start: 202112
  10. FASLODEX [Concomitant]
     Active Substance: FULVESTRANT
     Indication: Breast cancer metastatic
     Dosage: 2 DOSAGE FORM, Q4W (2 INJECTIONS EVERY 28 DAYS)
     Route: 065
     Dates: start: 202112, end: 202208
  11. FASLODEX [Concomitant]
     Active Substance: FULVESTRANT
     Dosage: 2 DOSAGE FORM (2 INJECTIONS EVERY WEEK FOR THE FIRST 6 WEEKS AND THEN 2 INJECTIONS EVERY 28 DAYS)
     Route: 065
     Dates: start: 202201, end: 202208
  12. CALCIUM [Concomitant]
     Active Substance: CALCIUM
     Indication: Osteoporosis prophylaxis
     Dosage: 2 DOSAGE FORM, QD
     Route: 048
     Dates: start: 202201

REACTIONS (2)
  - Neoplasm malignant [Unknown]
  - Product dose omission issue [Unknown]

NARRATIVE: CASE EVENT DATE: 20220801
